FAERS Safety Report 8846012 (Version 1)
Quarter: 2012Q4

REPORT INFORMATION
  Report Type: 
  Country: CA (occurrence: CA)
  Receive Date: 20121017
  Receipt Date: 20121017
  Transmission Date: 20130627
  Serious: No
  Sender: FDA-Public Use
  Company Number: CA-VERTEX PHARMACEUTICAL INC.-2012-022728

PATIENT
  Sex: Female

DRUGS (3)
  1. INCIVEK [Suspect]
     Indication: HEPATITIS C
     Dosage: UNK
     Route: 048
     Dates: start: 201206, end: 2012
  2. RIBAVIRIN [Suspect]
     Indication: HEPATITIS C
     Dosage: 400 mg, UNK
     Dates: start: 201206
  3. PEGINTERFERON [Suspect]
     Indication: HEPATITIS C
     Dosage: 135, units not provided
     Dates: start: 201206

REACTIONS (1)
  - Rash [Recovered/Resolved]
